FAERS Safety Report 12192501 (Version 2)
Quarter: 2016Q2

REPORT INFORMATION
  Report Type: Spontaneous
  Country: DE (occurrence: DE)
  Receive Date: 20160318
  Receipt Date: 20160411
  Transmission Date: 20160815
  Serious: Yes (Other)
  Sender: FDA-Public Use
  Company Number: GXKR2016DE001384

PATIENT
  Age: 31 Year
  Sex: Female
  Weight: 56 kg

DRUGS (1)
  1. OFLOHEXAL [Suspect]
     Active Substance: OFLOXACIN
     Indication: CYSTITIS
     Dosage: 100 MG, BID
     Route: 048
     Dates: start: 20160311, end: 20160312

REACTIONS (10)
  - Headache [Unknown]
  - Dizziness [Recovered/Resolved]
  - Hot flush [Recovered/Resolved]
  - Influenza like illness [Unknown]
  - Circulatory collapse [Recovered/Resolved]
  - Cold sweat [Recovered/Resolved]
  - Constipation [Recovered/Resolved]
  - Tachycardia [Recovered/Resolved]
  - Somnolence [Recovered/Resolved]
  - Skin sensitisation [Recovered/Resolved]

NARRATIVE: CASE EVENT DATE: 20160311
